FAERS Safety Report 7077075-7 (Version None)
Quarter: 2010Q4

REPORT INFORMATION
  Report Type: 
  Country: None (occurrence: None)
  Receive Date: 20101101
  Receipt Date: 20101026
  Transmission Date: 20110411
  Serious: Yes (Life-Threatening, Hospitalization, Other)
  Sender: FDA-Public Use
  Company Number: JP-NOVOPROD-315572

PATIENT
  Age: 84 Year
  Sex: Female
  Weight: 33 kg

DRUGS (9)
  1. VICTOZA [Suspect]
     Indication: TYPE 2 DIABETES MELLITUS
     Dosage: 0.3 MG, QD
     Route: 058
     Dates: start: 20100907
  2. VICTOZA [Suspect]
     Dosage: 0.6 MG, QD
     Route: 058
     Dates: start: 20100921, end: 20100921
  3. NOVORAPID CHU FLEXPEN [Suspect]
     Indication: TYPE 2 DIABETES MELLITUS
     Dosage: 4U-4U-4U
     Route: 058
     Dates: start: 20091027
  4. NOVORAPID CHU FLEXPEN [Suspect]
     Dosage: 4-6-4
  5. NOVORAPID CHU FLEXPEN [Suspect]
     Dosage: 4-8-4
  6. NOVORAPID CHU FLEXPEN [Suspect]
     Dosage: UNK
     Dates: end: 20100907
  7. LANTUS [Concomitant]
     Indication: TYPE 2 DIABETES MELLITUS
     Dosage: 8 U, QD
     Route: 058
     Dates: start: 20091001, end: 20100920
  8. LANTUS [Concomitant]
     Dosage: 10 U, QD
     Dates: start: 20091127
  9. AMARYL [Concomitant]
     Indication: TYPE 2 DIABETES MELLITUS
     Dosage: 1 MG, QD
     Route: 048
     Dates: start: 20100924, end: 20100926

REACTIONS (5)
  - DECREASED APPETITE [None]
  - DEHYDRATION [None]
  - DIABETIC HYPERGLYCAEMIC COMA [None]
  - HEAT ILLNESS [None]
  - HYPERGLYCAEMIA [None]
